FAERS Safety Report 4906540-0 (Version None)
Quarter: 2006Q1

REPORT INFORMATION
  Report Type: 
  Country: None (occurrence: None)
  Receive Date: 20060209
  Receipt Date: 20050823
  Transmission Date: 20060701
  Serious: Yes (Disabling)
  Sender: FDA-Public Use
  Company Number: US-MERCK-0508USA03908

PATIENT
  Age: 35 Year
  Sex: Male
  Weight: 66 kg

DRUGS (3)
  1. VIOXX [Suspect]
     Indication: ARTHRITIS
     Route: 048
     Dates: start: 20000101, end: 20040101
  2. HYDROCODONE HYDROCHLORIDE [Concomitant]
     Indication: PAIN
     Route: 065
  3. NAPROXEN [Concomitant]
     Route: 065
     Dates: start: 20000101, end: 20040101

REACTIONS (7)
  - CARDIAC FAILURE CONGESTIVE [None]
  - HEAD INJURY [None]
  - HEART RATE IRREGULAR [None]
  - INTERVERTEBRAL DISC DEGENERATION [None]
  - LOWER LIMB FRACTURE [None]
  - MYOCARDIAL INFARCTION [None]
  - PELVIC FRACTURE [None]
